FAERS Safety Report 22072303 (Version 1)
Quarter: 2023Q1

REPORT INFORMATION
  Report Type: Spontaneous
  Country: US (occurrence: US)
  Receive Date: 20230308
  Receipt Date: 20230308
  Transmission Date: 20230417
  Serious: No
  Sender: FDA-Public Use
  Company Number: US-ABBVIE-4316949

PATIENT
  Age: 80 Year
  Sex: Female
  Weight: 68.038 kg

DRUGS (4)
  1. SKYRIZI [Suspect]
     Active Substance: RISANKIZUMAB-RZAA
     Indication: Psoriasis
     Route: 058
     Dates: end: 20230221
  2. SKYRIZI [Suspect]
     Active Substance: RISANKIZUMAB-RZAA
     Indication: Psoriatic arthropathy
  3. ALENDRONATE [Concomitant]
     Active Substance: ALENDRONATE SODIUM
     Indication: Product used for unknown indication
  4. LITHIUM [Concomitant]
     Active Substance: LITHIUM
     Indication: Bipolar disorder

REACTIONS (4)
  - Dizziness [Recovering/Resolving]
  - Gait inability [Recovered/Resolved]
  - Vertigo [Recovering/Resolving]
  - Mobility decreased [Recovered/Resolved]

NARRATIVE: CASE EVENT DATE: 20230208
